FAERS Safety Report 18125037 (Version 1)
Quarter: 2020Q3

REPORT INFORMATION
  Report Type: Report from Study
  Country: US (occurrence: US)
  Receive Date: 20200807
  Receipt Date: 20200807
  Transmission Date: 20201103
  Serious: No
  Sender: FDA-Public Use
  Company Number: NVSC2020US216586

PATIENT
  Sex: Female

DRUGS (1)
  1. COSENTYX [Suspect]
     Active Substance: SECUKINUMAB
     Indication: PSORIATIC ARTHROPATHY
     Dosage: 150 MG, OTHER(ONCE WEEKLY FOR 5 WEEKS (LOADING),THEN ONCE EVERY 4 WEEKS (MAINTENANCE)
     Route: 058
     Dates: start: 20200802

REACTIONS (2)
  - Injection site erythema [Unknown]
  - Injection site mass [Unknown]
